FAERS Safety Report 9042827 (Version 2)
Quarter: 2013Q1

REPORT INFORMATION
  Report Type: Report from Study
  Country: BR (occurrence: BR)
  Receive Date: 20130129
  Receipt Date: 20130131
  Transmission Date: 20140127
  Serious: Yes (Disabling)
  Sender: FDA-Public Use
  Company Number: BR-ABBOTT-13P-020-1041416-00

PATIENT
  Sex: Female

DRUGS (4)
  1. HUMIRA [Suspect]
     Indication: ANKYLOSING SPONDYLITIS
     Dosage: 4 DOSES
     Route: 058
     Dates: start: 20120827, end: 20121012
  2. HUMIRA [Suspect]
     Indication: CROHN^S DISEASE
  3. PROTOS [Concomitant]
     Indication: PRODUCT USED FOR UNKNOWN INDICATION
  4. DEPURA [Concomitant]
     Indication: PRODUCT USED FOR UNKNOWN INDICATION

REACTIONS (5)
  - Spinal disorder [Unknown]
  - Drug ineffective [Unknown]
  - Spinal deformity [Unknown]
  - Mobility decreased [Unknown]
  - Arthritis enteropathic [Recovered/Resolved]
